FAERS Safety Report 8481459-X (Version None)
Quarter: 2012Q3

REPORT INFORMATION
  Report Type: 
  Country: None (occurrence: None)
  Receive Date: 20120702
  Receipt Date: 20120620
  Transmission Date: 20120928
  Serious: Yes (Hospitalization)
  Sender: FDA-Public Use
  Company Number: JP-JNJFOC-20120507216

PATIENT
  Sex: Female
  Weight: 44 kg

DRUGS (3)
  1. PENTASA [Concomitant]
     Route: 048
  2. REMICADE [Suspect]
     Indication: CROHN'S DISEASE
     Dosage: FIRST DOSE
     Route: 042
     Dates: start: 20100721
  3. REMICADE [Suspect]
     Dosage: 14TH DOSE
     Route: 042
     Dates: start: 20120404

REACTIONS (2)
  - CHRONIC INFLAMMATORY DEMYELINATING POLYRADICULONEUROPATHY [None]
  - GUILLAIN-BARRE SYNDROME [None]
